FAERS Safety Report 19637240 (Version 3)
Quarter: 2021Q4

REPORT INFORMATION
  Report Type: Spontaneous
  Country: US (occurrence: US)
  Receive Date: 20210730
  Receipt Date: 20211113
  Transmission Date: 20220303
  Serious: No
  Sender: FDA-Public Use
  Company Number: NVSC2021US165483

PATIENT
  Age: 3 Year
  Sex: Female

DRUGS (3)
  1. ILARIS [Suspect]
     Active Substance: CANAKINUMAB
     Indication: Autoinflammatory disease
     Dosage: 30 MG (EVERY 6 WEEKS)
     Route: 058
     Dates: start: 20190724
  2. ILARIS [Suspect]
     Active Substance: CANAKINUMAB
     Indication: Juvenile idiopathic arthritis
     Dosage: 30 MG, QMO
     Route: 058
     Dates: start: 20190828, end: 20210701
  3. ILARIS [Suspect]
     Active Substance: CANAKINUMAB
     Indication: Still^s disease

REACTIONS (2)
  - Malaise [Unknown]
  - Hepatic enzyme increased [Unknown]

NARRATIVE: CASE EVENT DATE: 20210713
